FAERS Safety Report 5868440-1 (Version None)
Quarter: 2008Q3

REPORT INFORMATION
  Report Type: 
  Country: None (occurrence: None)
  Receive Date: 20080903
  Receipt Date: 20080827
  Transmission Date: 20090109
  Serious: Yes (Hospitalization)
  Sender: FDA-Public Use
  Company Number: JP-ASTRAZENECA-2008AP06728

PATIENT
  Age: 63 Year
  Sex: Male

DRUGS (2)
  1. CRESTOR [Suspect]
     Indication: LIPIDS ABNORMAL
     Route: 048
  2. INSULIN [Concomitant]
     Indication: DIABETES MELLITUS
     Dosage: DOSE UNKNOWN
     Route: 065

REACTIONS (4)
  - BLOOD CREATINE PHOSPHOKINASE INCREASED [None]
  - HEMIPARESIS [None]
  - PYREXIA [None]
  - RENAL IMPAIRMENT [None]
